FAERS Safety Report 9699104 (Version 1)
Quarter: 2013Q4

REPORT INFORMATION
  Report Type: Spontaneous
  Country: FR (occurrence: FR)
  Receive Date: 20131120
  Receipt Date: 20131120
  Transmission Date: 20140711
  Serious: Yes (Other)
  Sender: FDA-Public Use
  Company Number: FR-B.I. PHARMACEUTICALS,INC./RIDGEFIELD-2013-FF-02695FF

PATIENT
  Age: 58 Year
  Sex: Male

DRUGS (4)
  1. SIFROL [Suspect]
     Indication: PARKINSON^S DISEASE
     Dosage: 2.1 MG
     Route: 048
     Dates: start: 201109
  2. STALEVO [Concomitant]
     Indication: PARKINSON^S DISEASE
     Dosage: 650 MG
     Route: 048
     Dates: start: 201109
  3. AZILECT [Concomitant]
     Indication: PARKINSON^S DISEASE
     Dosage: 1 MG
     Route: 048
     Dates: start: 201109
  4. SINEMET [Concomitant]
     Indication: PARKINSON^S DISEASE
     Dosage: 200 MG
     Route: 048
     Dates: start: 201109

REACTIONS (4)
  - Impulse-control disorder [Not Recovered/Not Resolved]
  - Pathological gambling [Not Recovered/Not Resolved]
  - Dependence [Not Recovered/Not Resolved]
  - Eating disorder [Not Recovered/Not Resolved]
